FAERS Safety Report 19412503 (Version 5)
Quarter: 2024Q2

REPORT INFORMATION
  Report Type: Spontaneous
  Country: US (occurrence: US)
  Receive Date: 20210614
  Receipt Date: 20240524
  Transmission Date: 20240716
  Serious: Yes (Other)
  Sender: FDA-Public Use
  Company Number: US-JNJFOC-20210615187

PATIENT
  Age: 50 Year
  Sex: Female

DRUGS (5)
  1. ELMIRON [Suspect]
     Active Substance: PENTOSAN POLYSULFATE SODIUM
     Indication: Cystitis interstitial
     Dosage: 100 MG VARYING FREQUENCY OF TWICE THRICE AND FOUR TIMES DAILY AND 200 MG TWICE DAILY
     Route: 048
     Dates: start: 201006, end: 202009
  2. ELMIRON [Suspect]
     Active Substance: PENTOSAN POLYSULFATE SODIUM
     Route: 048
     Dates: start: 20100927
  3. DIAZEPAM [Concomitant]
     Active Substance: DIAZEPAM
     Indication: Pain
     Dates: start: 201006
  4. HYPROMELLOSE 2910 (4000 MPA.S) [Concomitant]
     Active Substance: HYPROMELLOSE 2910 (4000 MPA.S)
     Indication: Dry eye
     Dosage: 0.25% - 0.3% GEL 1 GTT EVERY HOUR
     Route: 065
     Dates: start: 201203
  5. LOTEMAX [Concomitant]
     Active Substance: LOTEPREDNOL ETABONATE
     Indication: Dry eye
     Dosage: 0.5% OPTHALMIC SUSPENSION 1 GTT EVERY NIGHT AT BED TIME OD [INTERMITTENT]
     Dates: start: 201203, end: 202112

REACTIONS (7)
  - Dry age-related macular degeneration [Not Recovered/Not Resolved]
  - Haematochezia [Unknown]
  - Pigmentary maculopathy [Not Recovered/Not Resolved]
  - Dry eye [Not Recovered/Not Resolved]
  - Anxiety [Not Recovered/Not Resolved]
  - Product use issue [Unknown]
  - Off label use [Unknown]

NARRATIVE: CASE EVENT DATE: 20100601
